FAERS Safety Report 14295475 (Version 3)
Quarter: 2018Q1

REPORT INFORMATION
  Report Type: Spontaneous
  Country: US (occurrence: US)
  Receive Date: 20171218
  Receipt Date: 20180103
  Transmission Date: 20180509
  Serious: Yes (Hospitalization)
  Sender: FDA-Public Use
  Company Number: US-PFIZER INC-2017531296

PATIENT
  Age: 58 Year
  Sex: Male

DRUGS (2)
  1. SUTENT [Suspect]
     Active Substance: SUNITINIB MALATE
     Indication: RENAL CANCER STAGE IV
     Dosage: 50 MG, CYCLIC (2 WEEKS ON/1 WEEK OFF)
     Dates: start: 20171205, end: 20171213
  2. TYLENOL [Concomitant]
     Active Substance: ACETAMINOPHEN
     Dosage: UNK

REACTIONS (12)
  - Oropharyngeal spasm [Unknown]
  - Fatigue [Unknown]
  - Hypercalcaemia [Unknown]
  - Muscle spasms [Unknown]
  - Dysarthria [Unknown]
  - Asthenia [Unknown]
  - Thinking abnormal [Unknown]
  - Decreased appetite [Unknown]
  - Cough [Unknown]
  - Jaundice [Unknown]
  - Liver function test increased [Unknown]
  - Neoplasm progression [Unknown]

NARRATIVE: CASE EVENT DATE: 201712
